FAERS Safety Report 14422523 (Version 2)
Quarter: 2018Q2

REPORT INFORMATION
  Report Type: Spontaneous
  Country: DK (occurrence: DK)
  Receive Date: 20180123
  Receipt Date: 20180504
  Transmission Date: 20180711
  Serious: Yes (Life-Threatening, Hospitalization, Other)
  Sender: FDA-Public Use
  Company Number: DK-MACLEODS PHARMACEUTICALS US LTD-MAC2018008723

PATIENT

DRUGS (1)
  1. LOSARTAN POTASSIUM. [Suspect]
     Active Substance: LOSARTAN POTASSIUM
     Indication: PRODUCT USED FOR UNKNOWN INDICATION
     Dosage: 100 MILLIGRAM, 98 LOSARTAN 100 MG TABLETS WITHIN THE PREVIOUS 24 HOURS
     Route: 065

REACTIONS (6)
  - Hypotension [Recovered/Resolved]
  - Condition aggravated [Unknown]
  - Hyperglycaemia [Recovered/Resolved]
  - Toxicity to various agents [Recovered/Resolved]
  - Metabolic acidosis [Recovered/Resolved]
  - Intentional overdose [Recovered/Resolved]
